FAERS Safety Report 12213481 (Version 1)
Quarter: 2016Q1

REPORT INFORMATION
  Report Type: Spontaneous
  Country: None (occurrence: None)
  Receive Date: 20160325
  Receipt Date: 20160325
  Transmission Date: 20160526
  Serious: Yes (Disabling)
  Sender: FDA-Public Use
  Company Number: None

PATIENT
  Sex: Male
  Weight: 104.33 kg

DRUGS (3)
  1. EFFEXOR [Concomitant]
     Active Substance: VENLAFAXINE HYDROCHLORIDE
  2. PROPECIA [Suspect]
     Active Substance: FINASTERIDE
     Indication: ANDROGENETIC ALOPECIA
     Dates: start: 20060301, end: 20160229
  3. XANAX [Concomitant]
     Active Substance: ALPRAZOLAM

REACTIONS (9)
  - Anxiety [None]
  - Nausea [None]
  - Depression [None]
  - Personal relationship issue [None]
  - Divorced [None]
  - Panic attack [None]
  - Erectile dysfunction [None]
  - Feeling abnormal [None]
  - Impaired work ability [None]
